FAERS Safety Report 11049373 (Version 1)
Quarter: 2015Q2

REPORT INFORMATION
  Report Type: Spontaneous
  Country: US (occurrence: US)
  Receive Date: 20150420
  Receipt Date: 20150420
  Transmission Date: 20150821
  Serious: Yes (Other)
  Sender: FDA-Public Use
  Company Number: US-INCYTE CORPORATION-2015IN001580

PATIENT
  Sex: Male
  Weight: 81.18 kg

DRUGS (1)
  1. JAKAFI [Suspect]
     Active Substance: RUXOLITINIB
     Indication: MYELOFIBROSIS
     Dosage: 15 MG, BID
     Route: 048
     Dates: start: 201502

REACTIONS (6)
  - Dizziness [Unknown]
  - Blood count abnormal [Unknown]
  - Blindness [Unknown]
  - Balance disorder [Unknown]
  - Hyperhidrosis [Unknown]
  - Influenza like illness [Unknown]
